FAERS Safety Report 9302014 (Version 1)
Quarter: 2013Q2

REPORT INFORMATION
  Report Type: Spontaneous
  Country: US (occurrence: US)
  Receive Date: 20130521
  Receipt Date: 20130521
  Transmission Date: 20140414
  Serious: Yes (Other)
  Sender: FDA-Public Use
  Company Number: CHPA2013US008407

PATIENT
  Age: 53 Year
  Sex: Male

DRUGS (2)
  1. MAALOX ANTACID BARRIER [Suspect]
     Indication: HIATUS HERNIA
     Dosage: UNK, UNK
     Route: 048
     Dates: start: 2004
  2. MAALOX ANTACID BARRIER [Suspect]
     Indication: GASTROOESOPHAGEAL REFLUX DISEASE
     Dosage: UNK, UNK
     Route: 048

REACTIONS (9)
  - Rib fracture [Recovered/Resolved]
  - Road traffic accident [Recovered/Resolved]
  - Ulcer [Unknown]
  - Neck injury [Recovered/Resolved]
  - Joint injury [Unknown]
  - Stress [Unknown]
  - Disease recurrence [Unknown]
  - Therapeutic response unexpected [Unknown]
  - Off label use [Unknown]
